FAERS Safety Report 5817311-5 (Version None)
Quarter: 2008Q3

REPORT INFORMATION
  Report Type: 
  Country: None (occurrence: None)
  Receive Date: 20080722
  Receipt Date: 20080717
  Transmission Date: 20090109
  Serious: Yes (Disabling)
  Sender: FDA-Public Use
  Company Number: B0529963A

PATIENT
  Age: 64 Year
  Sex: Female

DRUGS (9)
  1. CLENIL [Suspect]
     Indication: ASTHMA
     Route: 055
     Dates: start: 20080416, end: 20080522
  2. BENDROFLUMETHIAZIDE [Concomitant]
     Indication: HYPERTENSION
     Dosage: 2.5MG PER DAY
     Route: 048
     Dates: start: 19980101
  3. CODEINE PHOSPHATE [Concomitant]
     Indication: OSTEOARTHRITIS
     Dosage: 15MG AS REQUIRED
     Route: 048
     Dates: start: 20050101
  4. DORZOLAMIDE [Concomitant]
     Route: 061
     Dates: start: 20060530
  5. ALBUTEROL [Concomitant]
     Route: 055
     Dates: start: 20050523
  6. SALMETEROL [Concomitant]
     Indication: ASTHMA
     Route: 055
     Dates: start: 20050315
  7. SIMVASTATIN [Concomitant]
     Dosage: 20MG PER DAY
     Route: 048
     Dates: start: 20060418
  8. LISINOPRIL [Concomitant]
     Dates: start: 20050404
  9. ACETAMINOPHEN [Concomitant]
     Indication: OSTEOARTHRITIS
     Route: 048
     Dates: start: 20070920

REACTIONS (3)
  - COUGH [None]
  - RETCHING [None]
  - SPEECH DISORDER [None]
